FAERS Safety Report 16467002 (Version 3)
Quarter: 2019Q3

REPORT INFORMATION
  Report Type: Spontaneous
  Country: JP (occurrence: JP)
  Receive Date: 20190624
  Receipt Date: 20190821
  Transmission Date: 20191004
  Serious: Yes (Hospitalization)
  Sender: FDA-Public Use
  Company Number: JP-ROCHE-2341154

PATIENT
  Age: 11 Year
  Sex: Female
  Weight: 41 kg

DRUGS (9)
  1. SINGULAIR [Suspect]
     Active Substance: MONTELUKAST SODIUM
     Indication: ASTHMA
     Dosage: 5 MG, QD
     Route: 048
     Dates: start: 20130225
  2. XOLAIR [Suspect]
     Active Substance: OMALIZUMAB
     Dosage: UNK
     Route: 058
     Dates: start: 20160308, end: 20160308
  3. ALLELOCK [Suspect]
     Active Substance: OLOPATADINE HYDROCHLORIDE
     Indication: RHINITIS ALLERGIC
     Dosage: 5 MG, BID
     Route: 048
     Dates: start: 20140912, end: 20170110
  4. METHYLPREDNISOLONE. [Concomitant]
     Active Substance: METHYLPREDNISOLONE
     Dosage: UNK
     Route: 065
     Dates: start: 20160330
  5. XOLAIR [Suspect]
     Active Substance: OMALIZUMAB
     Indication: ASTHMA
     Dosage: UNK
     Route: 058
     Dates: start: 20151117
  6. ADOAIR [Suspect]
     Active Substance: FLUTICASONE PROPIONATE\SALMETEROL XINAFOATE
     Indication: ASTHMA
     Dosage: 250 MG, BID
     Route: 055
     Dates: start: 20141224
  7. CARBOCISTEINE [Suspect]
     Active Substance: CARBOCYSTEINE
     Indication: ASTHMA
     Dosage: 250 MG, BID
     Route: 048
     Dates: start: 20140912, end: 20160615
  8. THEO-DUR [Suspect]
     Active Substance: THEOPHYLLINE ANHYDROUS
     Indication: ASTHMA
     Dosage: 100 MG, BID
     Route: 048
     Dates: start: 20160210, end: 20170124
  9. METHYLPREDNISOLONE. [Concomitant]
     Active Substance: METHYLPREDNISOLONE
     Indication: ASTHMA
     Dosage: UNK
     Route: 041
     Dates: start: 20160315

REACTIONS (2)
  - Therapeutic product effect incomplete [Unknown]
  - Asthma [Recovering/Resolving]

NARRATIVE: CASE EVENT DATE: 20160329
